FAERS Safety Report 7222094-0 (Version None)
Quarter: 2011Q1

REPORT INFORMATION
  Report Type: 
  Country: None (occurrence: None)
  Receive Date: 20110111
  Receipt Date: 20101018
  Transmission Date: 20110831
  Serious: No
  Sender: FDA-Public Use
  Company Number: DL2010-0827

PATIENT
  Age: 26 Year
  Sex: Female

DRUGS (2)
  1. MISOPROSTOL [Suspect]
     Dosage: 400 MCG, ORAL
     Route: 048
     Dates: start: 20101002
  2. MIFEPRISTONE (MIFEPREX) [Suspect]
     Indication: ABORTION INDUCED
     Dosage: 200 MG, ORAL
     Route: 048
     Dates: start: 20101001

REACTIONS (1)
  - ABORTION INCOMPLETE [None]
